FAERS Safety Report 5100602-3 (Version None)
Quarter: 2006Q3

REPORT INFORMATION
  Report Type: 
  Country: None (occurrence: None)
  Receive Date: 20060907
  Receipt Date: 20060907
  Transmission Date: 20061208
  Serious: Yes (Hospitalization)
  Sender: FDA-Public Use
  Company Number: None

PATIENT
  Age: 83 Year
  Sex: Female

DRUGS (12)
  1. PREGABALIN 50 MG PFIZER [Suspect]
     Indication: BACK PAIN
     Dosage: 50MG  BID  PO
     Route: 048
     Dates: start: 20060620, end: 20060623
  2. LEVOTHYROXINE SODIUM [Concomitant]
  3. ATORVASTATIN CALCIUM [Concomitant]
  4. ASPIRIN [Concomitant]
  5. MULTIPLE VITAMIN [Concomitant]
  6. RAMIPRIL [Concomitant]
  7. LANSOPRAZOLE [Concomitant]
  8. ALPHAGAN [Concomitant]
  9. COSOPT [Concomitant]
  10. FLONASE [Concomitant]
  11. HYDROCODONE/APA [Concomitant]
  12. GLIPIZIDE [Concomitant]

REACTIONS (4)
  - ASTHENIA [None]
  - GAIT DISTURBANCE [None]
  - HYPOGLYCAEMIA [None]
  - TREMOR [None]
